FAERS Safety Report 16542532 (Version 9)
Quarter: 2020Q4

REPORT INFORMATION
  Report Type: Report from Study
  Country: DE (occurrence: DE)
  Receive Date: 20190709
  Receipt Date: 20201118
  Transmission Date: 20210113
  Serious: Yes (Hospitalization, Other)
  Sender: FDA-Public Use
  Company Number: DE-BRISTOL-MYERS SQUIBB COMPANY-BMS-2019-064184

PATIENT
  Age: 71 Year
  Sex: Male

DRUGS (17)
  1. IMO-2125 [Suspect]
     Active Substance: TILSOTOLIMOD SODIUM
     Dosage: UNK
     Route: 036
     Dates: start: 20190614
  2. COUMARIN [Concomitant]
     Active Substance: COUMARIN
     Indication: PRODUCT USED FOR UNKNOWN INDICATION
     Dosage: 0.5 MILLIGRAM
     Route: 048
     Dates: start: 2019, end: 20190714
  3. IBUPROFEN. [Concomitant]
     Active Substance: IBUPROFEN
     Indication: PRODUCT USED FOR UNKNOWN INDICATION
     Dosage: 600 MILLIGRAM
     Route: 048
     Dates: start: 20190515, end: 20190520
  4. IPILIMUMAB [Suspect]
     Active Substance: IPILIMUMAB
     Indication: MALIGNANT MELANOMA
     Dosage: 360 MILLIGRAM
     Route: 042
     Dates: start: 20190523, end: 20190613
  5. IMO-2125 [Suspect]
     Active Substance: TILSOTOLIMOD SODIUM
     Indication: MALIGNANT MELANOMA
     Dosage: UNK
     Route: 036
     Dates: start: 20190516, end: 20190613
  6. DILTIAZEM. [Concomitant]
     Active Substance: DILTIAZEM
     Indication: PRODUCT USED FOR UNKNOWN INDICATION
     Dosage: 180 MILLIGRAM
     Route: 048
  7. DELIX PLUS [Concomitant]
     Active Substance: HYDROCHLOROTHIAZIDE\RAMIPRIL
     Indication: PRODUCT USED FOR UNKNOWN INDICATION
     Dosage: 5 MILLIGRAM
     Route: 048
     Dates: start: 2018
  8. IBUPROFEN. [Concomitant]
     Active Substance: IBUPROFEN
     Dosage: 600 MILLIGRAM
     Route: 048
     Dates: start: 20190613, end: 20190614
  9. PARACETAMOL [Concomitant]
     Active Substance: ACETAMINOPHEN
     Indication: PRODUCT USED FOR UNKNOWN INDICATION
     Dosage: 1500 MILLIGRAM
     Route: 048
     Dates: start: 20190516, end: 20190520
  10. PARACETAMOL [Concomitant]
     Active Substance: ACETAMINOPHEN
     Dosage: 500 MILLIGRAM
     Route: 048
     Dates: start: 20190521, end: 20190529
  11. PANTOPRAZOL [PANTOPRAZOLE] [Concomitant]
     Active Substance: PANTOPRAZOLE
     Indication: PRODUCT USED FOR UNKNOWN INDICATION
     Dosage: 40 MILLIGRAM
     Route: 048
     Dates: start: 20190619
  12. PREDNISOLONE. [Concomitant]
     Active Substance: PREDNISOLONE
     Indication: PRODUCT USED FOR UNKNOWN INDICATION
     Dosage: 10 MILLIGRAM
     Route: 048
     Dates: start: 20190814
  13. L-THYROXINE [LEVOTHYROXINE SODIUM] [Concomitant]
     Active Substance: LEVOTHYROXINE SODIUM
     Indication: PRODUCT USED FOR UNKNOWN INDICATION
     Dosage: 100 MILLIGRAM
     Route: 048
     Dates: start: 2018
  14. PARACETAMOL [Concomitant]
     Active Substance: ACETAMINOPHEN
     Dosage: 500 MILLIGRAM
     Route: 048
     Dates: start: 20190613, end: 20190614
  15. XARELTO [Concomitant]
     Active Substance: RIVAROXABAN
     Indication: PRODUCT USED FOR UNKNOWN INDICATION
     Dosage: 30 MILLIGRAM
     Route: 048
     Dates: start: 20190731, end: 20190801
  16. TINZAPARIN [Concomitant]
     Active Substance: TINZAPARIN
     Indication: PRODUCT USED FOR UNKNOWN INDICATION
     Route: 065
  17. DALTEPARIN SODIUM [Concomitant]
     Active Substance: DALTEPARIN SODIUM
     Indication: PRODUCT USED FOR UNKNOWN INDICATION
     Dosage: UNK, 1000 IE
     Route: 058
     Dates: start: 20190715, end: 20190730

REACTIONS (4)
  - Chronic gastritis [Recovered/Resolved]
  - Autoimmune colitis [Unknown]
  - Melaena [Recovered/Resolved]
  - Gastritis erosive [Recovered/Resolved]

NARRATIVE: CASE EVENT DATE: 20190619
